FAERS Safety Report 5020094-2 (Version None)
Quarter: 2006Q2

REPORT INFORMATION
  Report Type: 
  Country: None (occurrence: None)
  Receive Date: 20060607
  Receipt Date: 20060519
  Transmission Date: 20061013
  Serious: Yes (Life-Threatening)
  Sender: FDA-Public Use
  Company Number: CN-ROCHE-450024

PATIENT
  Age: 67 Year
  Sex: Male

DRUGS (1)
  1. ROCEPHIN [Suspect]
     Route: 042

REACTIONS (12)
  - ACUTE LEFT VENTRICULAR FAILURE [None]
  - ACUTE PULMONARY OEDEMA [None]
  - CHILLS [None]
  - CYANOSIS [None]
  - HAEMOPTYSIS [None]
  - HYPERTENSIVE CRISIS [None]
  - INTERSTITIAL LUNG DISEASE [None]
  - IRRITABILITY [None]
  - PALLOR [None]
  - PERIPHERAL COLDNESS [None]
  - RALES [None]
  - RESPIRATORY RATE INCREASED [None]
